FAERS Safety Report 7135800-0 (Version None)
Quarter: 2010Q4

REPORT INFORMATION
  Report Type: 
  Country: None (occurrence: None)
  Receive Date: 20101203
  Receipt Date: 20101202
  Transmission Date: 20110411
  Serious: Yes (Hospitalization)
  Sender: FDA-Public Use
  Company Number: DE-MERCK-1012DEU00009

PATIENT
  Age: 75 Year
  Sex: Male

DRUGS (1)
  1. SINEMET [Suspect]
     Route: 048

REACTIONS (2)
  - DYSPNOEA [None]
  - PLEURAL EFFUSION [None]
